FAERS Safety Report 6874941-X (Version None)
Quarter: 2010Q2

REPORT INFORMATION
  Report Type: 
  Country: None (occurrence: None)
  Receive Date: 20100610
  Receipt Date: 20100215
  Transmission Date: 20101027
  Serious: Yes (Other)
  Sender: FDA-Public Use
  Company Number: 2010SP009508

PATIENT
  Age: 31 Year
  Sex: Female

DRUGS (1)
  1. SAPHRIS [Suspect]
     Indication: BIPOLAR DISORDER
     Dosage: 10 MG;QD;SL
     Dates: start: 20100208, end: 20100210

REACTIONS (1)
  - EXTRAPYRAMIDAL DISORDER [None]
